FAERS Safety Report 18388772 (Version 2)
Quarter: 2021Q1

REPORT INFORMATION
  Report Type: Report from Study
  Country: US (occurrence: US)
  Receive Date: 20201015
  Receipt Date: 20210119
  Transmission Date: 20210419
  Serious: Yes (Hospitalization)
  Sender: FDA-Public Use
  Company Number: US-EISAI MEDICAL RESEARCH-EC-2020-082173

PATIENT
  Age: 66 Year
  Sex: Female
  Weight: 65.2 kg

DRUGS (3)
  1. ERIBULIN [Suspect]
     Active Substance: ERIBULIN
     Indication: SARCOMA
     Route: 041
     Dates: start: 20200528, end: 20201008
  2. PEMBROLIZUMAB. [Suspect]
     Active Substance: PEMBROLIZUMAB
     Indication: SARCOMA
     Route: 041
     Dates: start: 20200528, end: 20201001
  3. ERIBULIN [Suspect]
     Active Substance: ERIBULIN
     Route: 041
     Dates: start: 20201210

REACTIONS (1)
  - Immune-mediated pneumonitis [Unknown]

NARRATIVE: CASE EVENT DATE: 20201014
